FAERS Safety Report 6347226-8 (Version None)
Quarter: 2009Q3

REPORT INFORMATION
  Report Type: 
  Country: None (occurrence: None)
  Receive Date: 20090910
  Receipt Date: 20090902
  Transmission Date: 20100115
  Serious: Yes (Hospitalization)
  Sender: FDA-Public Use
  Company Number: PHHY2009FR37404

PATIENT
  Age: 58 Year
  Sex: Female

DRUGS (2)
  1. ACLASTA [Suspect]
  2. EFFERALGAN [Concomitant]
     Dosage: 1 G, UNK

REACTIONS (4)
  - ABDOMINAL DISCOMFORT [None]
  - CYTOLYTIC HEPATITIS [None]
  - HYPOTENSION [None]
  - INFLUENZA LIKE ILLNESS [None]
